FAERS Safety Report 18111074 (Version 1)
Quarter: 2020Q3

REPORT INFORMATION
  Report Type: Spontaneous
  Country: CA (occurrence: CA)
  Receive Date: 20200804
  Receipt Date: 20200804
  Transmission Date: 20201103
  Serious: Yes (Disabling)
  Sender: FDA-Public Use
  Company Number: CA-TEVA-2020-CA-1808579

PATIENT
  Sex: Female

DRUGS (12)
  1. NAPROXEN. [Concomitant]
     Active Substance: NAPROXEN
  2. SULFASALAZINE. [Concomitant]
     Active Substance: SULFASALAZINE
     Indication: HYPERSENSITIVITY
     Dosage: 2 GRAM DAILY;
     Route: 048
  3. AZATHIOPRINE. [Concomitant]
     Active Substance: AZATHIOPRINE
     Route: 048
  4. XELJANZ XR [Concomitant]
     Active Substance: TOFACITINIB CITRATE
     Indication: RHEUMATOID ARTHRITIS
     Dosage: 11 MILLIGRAM DAILY;
  5. METHOTREXATE. [Suspect]
     Active Substance: METHOTREXATE
     Indication: PRODUCT USED FOR UNKNOWN INDICATION
     Route: 058
  6. HYDROXYCHLOROQUINE SULFATE. [Concomitant]
     Active Substance: HYDROXYCHLOROQUINE SULFATE
     Route: 048
  7. INDOCID [Concomitant]
     Active Substance: INDOMETHACIN
     Dosage: 25 MILLIGRAM DAILY;
     Route: 048
  8. AZATHIOPRINE. [Concomitant]
     Active Substance: AZATHIOPRINE
  9. PREDNISONE. [Concomitant]
     Active Substance: PREDNISONE
  10. RITUXIMAB. [Suspect]
     Active Substance: RITUXIMAB
     Indication: RHEUMATOID ARTHRITIS
     Route: 042
  11. METHOTREXATE. [Suspect]
     Active Substance: METHOTREXATE
     Indication: PRODUCT USED FOR UNKNOWN INDICATION
     Route: 048
  12. NAPROXEN. [Concomitant]
     Active Substance: NAPROXEN
     Route: 065

REACTIONS (4)
  - Product use in unapproved indication [Unknown]
  - Disability [Unknown]
  - Drug ineffective [Unknown]
  - Off label use [Unknown]
